FAERS Safety Report 23263313 (Version 2)
Quarter: 2023Q4

REPORT INFORMATION
  Report Type: Spontaneous
  Country: GB (occurrence: GB)
  Receive Date: 20231205
  Receipt Date: 20231228
  Transmission Date: 20240110
  Serious: Yes (Other)
  Sender: FDA-Public Use
  Company Number: GB-SEPTODONT-2023018142

PATIENT
  Age: 63 Year
  Sex: Male
  Weight: 67 kg

DRUGS (2)
  1. ARTICAINE HYDROCHLORIDE\EPINEPHRINE BITARTRATE [Suspect]
     Active Substance: ARTICAINE HYDROCHLORIDE\EPINEPHRINE BITARTRATE
     Indication: Device physical property issue
     Dosage: 2.2 ML
     Route: 004
     Dates: start: 20231102, end: 20231102
  2. PROTHIADEN [Concomitant]
     Active Substance: DOTHIEPIN HYDROCHLORIDE
     Indication: Stress
     Dates: start: 20230925, end: 20231004

REACTIONS (19)
  - Medication error [Unknown]
  - Chest discomfort [Recovering/Resolving]
  - Dyspnoea [Recovering/Resolving]
  - Migraine [Recovering/Resolving]
  - Vision blurred [Recovering/Resolving]
  - Lethargy [Recovering/Resolving]
  - Gastrointestinal disorder [Recovering/Resolving]
  - Balance disorder [Not Recovered/Not Resolved]
  - Arthralgia [Recovering/Resolving]
  - Dizziness [Not Recovered/Not Resolved]
  - Rhinorrhoea [Recovering/Resolving]
  - Sneezing [Recovered/Resolved]
  - Agitation [Recovering/Resolving]
  - Drooling [Recovering/Resolving]
  - Chest pain [Recovering/Resolving]
  - Speech disorder [Recovered/Resolved]
  - Blood pressure increased [Recovering/Resolving]
  - Nausea [Unknown]
  - Accidental exposure to product [Unknown]

NARRATIVE: CASE EVENT DATE: 20231102
